FAERS Safety Report 7929088-8 (Version None)
Quarter: 2011Q4

REPORT INFORMATION
  Report Type: 
  Country: None (occurrence: None)
  Receive Date: 20111119
  Receipt Date: 20111114
  Transmission Date: 20120403
  Serious: Yes (Life-Threatening, Hospitalization)
  Sender: FDA-Public Use
  Company Number: CA-ASTRAZENECA-2011SE68747

PATIENT
  Sex: Female
  Weight: 117.9 kg

DRUGS (4)
  1. KEPPRA [Concomitant]
     Route: 065
  2. TOPAMAX [Concomitant]
     Route: 048
  3. NEXIUM [Suspect]
     Route: 048
  4. OXYCONTIN [Concomitant]
     Route: 065

REACTIONS (4)
  - HYPOKALAEMIA [None]
  - OEDEMA PERIPHERAL [None]
  - MUSCLE SPASMS [None]
  - INTESTINAL OBSTRUCTION [None]
